FAERS Safety Report 24643707 (Version 4)
Quarter: 2024Q4

REPORT INFORMATION
  Report Type: Spontaneous
  Country: US (occurrence: US)
  Receive Date: 20241120
  Receipt Date: 20241227
  Transmission Date: 20250114
  Serious: No
  Sender: PFIZER
  Company Number: US-PFIZER INC-202400299311

PATIENT
  Age: 11 Year
  Sex: Male

DRUGS (2)
  1. GENOTROPIN [Suspect]
     Active Substance: SOMATROPIN
     Dosage: 0.6 MG, 1X/DAY
  2. GENOTROPIN [Suspect]
     Active Substance: SOMATROPIN
     Dosage: 1.2 MG, ONCE DAILY FROM MONDAY THROUGH SUNDAY

REACTIONS (4)
  - Drug dose omission by device [Unknown]
  - Device mechanical issue [Unknown]
  - Device breakage [Unknown]
  - Device material issue [Unknown]
